FAERS Safety Report 25451593 (Version 1)
Quarter: 2025Q2

REPORT INFORMATION
  Report Type: Spontaneous
  Country: US (occurrence: None)
  Receive Date: 20250617
  Receipt Date: 20250617
  Transmission Date: 20250717
  Serious: Yes (Hospitalization)
  Sender: FDA-CTU
  Company Number: None

PATIENT
  Age: 53 Year
  Sex: Male
  Weight: 70.65 kg

DRUGS (2)
  1. BOSULIF [Suspect]
     Active Substance: BOSUTINIB MONOHYDRATE
     Indication: Chronic myeloid leukaemia
     Dates: start: 20241122, end: 20250606
  2. BOSULIF 200 [Concomitant]

REACTIONS (2)
  - Cardiac disorder [None]
  - Pericardial effusion [None]

NARRATIVE: CASE EVENT DATE: 20250415
